FAERS Safety Report 5657278-6 (Version None)
Quarter: 2008Q1

REPORT INFORMATION
  Report Type: 
  Country: None (occurrence: None)
  Receive Date: 20080310
  Receipt Date: 20080227
  Transmission Date: 20080703
  Serious: Yes (Other)
  Sender: FDA-Public Use
  Company Number: US-PFIZER INC-2008012400

PATIENT
  Sex: Female
  Weight: 61.2 kg

DRUGS (7)
  1. LYRICA [Suspect]
     Indication: BACK PAIN
     Route: 048
  2. LYRICA [Suspect]
     Indication: SCIATICA
  3. METHADONE HCL [Suspect]
     Indication: SCIATICA
     Route: 048
  4. METHADONE HCL [Suspect]
     Indication: BACK PAIN
  5. NORCO [Concomitant]
  6. PROTONIX [Concomitant]
  7. HYDROCODONE BITARTRATE + ACETAMINOPHEN [Concomitant]
     Route: 048

REACTIONS (5)
  - ACTIVITIES OF DAILY LIVING IMPAIRED [None]
  - CONDITION AGGRAVATED [None]
  - MUSCULOSKELETAL STIFFNESS [None]
  - OEDEMA PERIPHERAL [None]
  - PAIN IN EXTREMITY [None]
